FAERS Safety Report 18251161 (Version 3)
Quarter: 2020Q4

REPORT INFORMATION
  Report Type: Spontaneous
  Country: US (occurrence: US)
  Receive Date: 20200910
  Receipt Date: 20201211
  Transmission Date: 20210113
  Serious: Yes (Death, Life-Threatening, Hospitalization, Other)
  Sender: FDA-Public Use
  Company Number: US-AUROBINDO-AUR-APL-2020-046592

PATIENT
  Age: 42 Year
  Sex: Male

DRUGS (3)
  1. LOPERAMIDE [Suspect]
     Active Substance: LOPERAMIDE
     Indication: ABDOMINAL PAIN
     Dosage: WENT THROUGH A LOT^ OF LOPERAMIDE
     Route: 065
  2. LOPERAMIDE [Suspect]
     Active Substance: LOPERAMIDE
     Indication: DIARRHOEA
  3. LOPERAMIDE [Suspect]
     Active Substance: LOPERAMIDE
     Indication: CROHN^S DISEASE

REACTIONS (19)
  - Pancreatitis acute [Fatal]
  - Overdose [Fatal]
  - Torsade de pointes [Unknown]
  - Cardiac arrest [Recovered/Resolved]
  - Hypotension [Unknown]
  - Electrocardiogram QT prolonged [Fatal]
  - Alanine aminotransferase increased [Unknown]
  - Ventricular tachycardia [Fatal]
  - Bradycardia [Unknown]
  - Aspartate aminotransferase increased [Unknown]
  - Seizure like phenomena [Unknown]
  - Drug abuse [Fatal]
  - Unresponsive to stimuli [Unknown]
  - Ammonia increased [Unknown]
  - Toxicity to various agents [Fatal]
  - Brain injury [Fatal]
  - Encephalopathy [Unknown]
  - Blood phosphorus increased [Unknown]
  - Respiratory acidosis [Unknown]
